FAERS Safety Report 12151626 (Version 2)
Quarter: 2016Q2

REPORT INFORMATION
  Report Type: Spontaneous
  Country: GH (occurrence: GH)
  Receive Date: 20160304
  Receipt Date: 20160406
  Transmission Date: 20160815
  Serious: Yes (Death)
  Sender: FDA-Public Use
  Company Number: GH-ASTRAZENECA-2016SE21754

PATIENT
  Age: 31 Year
  Sex: Male

DRUGS (4)
  1. MERONEM [Suspect]
     Active Substance: MEROPENEM
     Indication: ENTEROCOCCAL INFECTION
     Route: 042
  2. AMIKACIN [Concomitant]
     Active Substance: AMIKACIN
  3. FLAGYL [Concomitant]
     Active Substance: METRONIDAZOLE\METRONIDAZOLE HYDROCHLORIDE
  4. MERONEM [Suspect]
     Active Substance: MEROPENEM
     Indication: ENTEROCOCCAL INFECTION
     Route: 042

REACTIONS (2)
  - Drug ineffective [Fatal]
  - Body temperature increased [Fatal]
